FAERS Safety Report 18573686 (Version 1)
Quarter: 2020Q4

REPORT INFORMATION
  Report Type: Spontaneous
  Country: US (occurrence: US)
  Receive Date: 20201202
  Receipt Date: 20201202
  Transmission Date: 20210114
  Serious: Yes (Hospitalization)
  Sender: FDA-Public Use
  Company Number: None

PATIENT
  Age: 91 Year
  Sex: Male

DRUGS (1)
  1. APIXABAN (APIXABAN 2.5MG TAB, UD) [Suspect]
     Active Substance: APIXABAN
     Indication: ATRIAL FIBRILLATION
     Route: 048
     Dates: start: 20161109, end: 20201125

REACTIONS (5)
  - Tachycardia [None]
  - Lower gastrointestinal haemorrhage [None]
  - Hypotension [None]
  - Haemorrhoids [None]
  - Gastric haemorrhage [None]

NARRATIVE: CASE EVENT DATE: 20201114
